FAERS Safety Report 5135486-0 (Version None)
Quarter: 2006Q4

REPORT INFORMATION
  Report Type: 
  Country: None (occurrence: None)
  Receive Date: 20061026
  Receipt Date: 20061019
  Transmission Date: 20070319
  Serious: Yes (Hospitalization)
  Sender: FDA-Public Use
  Company Number: 2006PK02132

PATIENT
  Age: 21160 Day
  Sex: Male
  Weight: 85 kg

DRUGS (5)
  1. ATACAND [Suspect]
     Indication: CARDIAC FAILURE
     Route: 048
     Dates: start: 20060413, end: 20060616
  2. RAMIPRIL [Concomitant]
     Indication: CONGESTIVE CARDIOMYOPATHY
     Dates: start: 20041015
  3. BELOC ZOK MITE [Concomitant]
     Indication: CONGESTIVE CARDIOMYOPATHY
     Dosage: 75 MG ONE IN THE MORNING AND A HALF IN THE EVENING
     Dates: start: 20041015
  4. TORSEMIDE [Concomitant]
     Indication: CONGESTIVE CARDIOMYOPATHY
     Dates: start: 20041015
  5. OSYROL [Concomitant]
     Indication: CONGESTIVE CARDIOMYOPATHY
     Dates: start: 20041015

REACTIONS (3)
  - DEHYDRATION [None]
  - DIARRHOEA [None]
  - RENAL FAILURE ACUTE [None]
